FAERS Safety Report 13128299 (Version 2)
Quarter: 2017Q2

REPORT INFORMATION
  Report Type: Spontaneous
  Country: FR (occurrence: FR)
  Receive Date: 20170118
  Receipt Date: 20170427
  Transmission Date: 20170830
  Serious: Yes (Other)
  Sender: FDA-Public Use
  Company Number: FR-PFIZER INC-2017016891

PATIENT
  Age: 60 Year
  Sex: Male

DRUGS (14)
  1. UROREC [Suspect]
     Active Substance: SILODOSIN
     Dosage: 1 DF, 1X/DAY
     Route: 048
     Dates: start: 201512
  2. FLOLAN [Concomitant]
     Active Substance: EPOPROSTENOL SODIUM
     Dosage: UNK
     Dates: end: 201509
  3. METFORMIN HCL [Suspect]
     Active Substance: METFORMIN HYDROCHLORIDE
     Indication: DIABETES MELLITUS
     Dosage: 850 MG, 2X/DAY
     Route: 048
     Dates: start: 2006
  4. PROCORALAN [Suspect]
     Active Substance: IVABRADINE
     Dosage: 5 MG, 2X/DAY
     Route: 048
     Dates: start: 2010
  5. LYRICA [Suspect]
     Active Substance: PREGABALIN
     Dosage: UNK
     Route: 048
  6. TRACLEER [Suspect]
     Active Substance: BOSENTAN
     Dosage: 125 MG, 2X/DAY
     Route: 048
     Dates: start: 2011
  7. AVODART [Suspect]
     Active Substance: DUTASTERIDE
     Dosage: DEPUIS 8 MONTHS
     Route: 048
  8. VELETRI [Suspect]
     Active Substance: EPOPROSTENOL
     Dosage: UNK
     Route: 042
     Dates: start: 201509
  9. PREVISCAN /00789001/ [Suspect]
     Active Substance: FLUINDIONE
     Dosage: UNK
     Route: 048
     Dates: start: 2010
  10. IMODIUM [Suspect]
     Active Substance: LOPERAMIDE HYDROCHLORIDE
     Dosage: UNK
     Route: 048
     Dates: start: 2009
  11. TAHOR [Suspect]
     Active Substance: ATORVASTATIN CALCIUM
     Dosage: 10 MG, 1X/DAY
     Route: 048
     Dates: start: 2006
  12. MONOTILDIEM [Suspect]
     Active Substance: DILTIAZEM
     Dosage: 200 MG, 1X/DAY
     Route: 048
     Dates: start: 2011
  13. INEXIUM /01479302/ [Suspect]
     Active Substance: ESOMEPRAZOLE MAGNESIUM
     Dosage: UNK
     Route: 048
     Dates: start: 2009
  14. ADCIRCA [Suspect]
     Active Substance: TADALAFIL
     Dosage: 20 MG, 2X/DAY
     Route: 048
     Dates: start: 2011

REACTIONS (3)
  - Rash erythematous [Not Recovered/Not Resolved]
  - Rash [Not Recovered/Not Resolved]
  - Condition aggravated [Not Recovered/Not Resolved]

NARRATIVE: CASE EVENT DATE: 201301
